FAERS Safety Report 6492847-5 (Version None)
Quarter: 2009Q4

REPORT INFORMATION
  Report Type: 
  Country: None (occurrence: None)
  Receive Date: 20091211
  Receipt Date: 20091211
  Transmission Date: 20100525
  Serious: Yes (Disabling)
  Sender: FDA-Public Use
  Company Number: None

PATIENT
  Age: 70 Year
  Sex: Female
  Weight: 47.6277 kg

DRUGS (2)
  1. BONIVA [Suspect]
     Indication: OSTEOPOROSIS
     Dosage: 3 MG EVERY 3 MONTHS IV
     Route: 042
     Dates: start: 20080612
  2. BONIVA [Suspect]
     Indication: OSTEOPOROSIS
     Dosage: 3 MG EVERY 3 MONTHS IV
     Route: 042
     Dates: start: 20081010

REACTIONS (1)
  - OSTEONECROSIS [None]
